FAERS Safety Report 8716691 (Version 3)
Quarter: 2013Q4

REPORT INFORMATION
  Report Type: Spontaneous
  Country: US (occurrence: US)
  Receive Date: 20120810
  Receipt Date: 20131106
  Transmission Date: 20140711
  Serious: Yes (Life-Threatening, Hospitalization)
  Sender: FDA-Public Use
  Company Number: US-009507513-2012SP027084

PATIENT
  Sex: Male

DRUGS (1)
  1. INTEGRILIN [Suspect]
     Indication: PERCUTANEOUS CORONARY INTERVENTION
     Dates: start: 20120516, end: 20120517

REACTIONS (1)
  - Cerebrovascular accident [Unknown]
